FAERS Safety Report 11334793 (Version 1)
Quarter: 2015Q3

REPORT INFORMATION
  Report Type: Spontaneous
  Country: FR (occurrence: None)
  Receive Date: 20150731
  Receipt Date: 20150731
  Transmission Date: 20151125
  Serious: Yes (Hospitalization)
  Sender: FDA-Public Use
  Company Number: FR-H14001-15-01404

PATIENT
  Age: 65 Year
  Sex: Female

DRUGS (17)
  1. CERUBIDINE [Suspect]
     Active Substance: DAUNORUBICIN HYDROCHLORIDE
     Indication: ACUTE MYELOID LEUKAEMIA
     Dates: start: 20081014, end: 20081016
  2. XANAX [Concomitant]
     Active Substance: ALPRAZOLAM
  3. FORLAX (MACROGOL) [Concomitant]
  4. OXYNORM (OXYCODONE HYDROCHLORIDE) [Concomitant]
  5. ARACYTINE (CYTARABINE) (UNKNOWN) (CYTARABINE)? [Suspect]
     Active Substance: CYTARABINE
     Indication: ACUTE MYELOID LEUKAEMIA
     Dates: start: 20081014, end: 20081020
  6. ZOPHEN (ONDANSETRON) [Concomitant]
  7. AMLOR (AMLODIPINE BESILATE) [Concomitant]
     Active Substance: AMLODIPINE BESYLATE
  8. GAVISCON [Concomitant]
     Active Substance: ALUMINUM HYDROXIDE\MAGNESIUM CARBONATE
  9. FUNGIZONE (AMPHOTERICIN B) [Concomitant]
  10. IMOVANE [Concomitant]
     Active Substance: ZOPICLONE
  11. LANSOYL (PARAFFIN, LIQUID) [Concomitant]
  12. PERFALGAN [Concomitant]
     Active Substance: ACETAMINOPHEN
  13. TAZOCILLINE (PIP/TAZO) [Concomitant]
  14. COLIMYCINE [Concomitant]
     Active Substance: COLISTIMETHATE SODIUM
  15. TOPALGIC (TRAMADOL HYDROCHLORIDE) [Concomitant]
     Active Substance: TRAMADOL
  16. INIPOMP (PANTOPRAZOLE SODIUM SESQUIHYDRATE) [Concomitant]
  17. LASILIX (FUROSEMIDE) [Concomitant]
     Active Substance: FUROSEMIDE

REACTIONS (4)
  - Bone marrow failure [None]
  - Pyrexia [None]
  - Productive cough [None]
  - Bronchopulmonary aspergillosis [None]

NARRATIVE: CASE EVENT DATE: 200810
